FAERS Safety Report 19163084 (Version 1)
Quarter: 2021Q2

REPORT INFORMATION
  Report Type: Spontaneous
  Country: GB (occurrence: GB)
  Receive Date: 20210421
  Receipt Date: 20210421
  Transmission Date: 20210717
  Serious: Yes (Other)
  Sender: FDA-Public Use
  Company Number: GB-TILLOMEDPR-2021-EPL-001254

PATIENT
  Age: 67 Year
  Sex: Female
  Weight: 73 kg

DRUGS (7)
  1. METFORMIN HYDROCHLORIDE. [Concomitant]
     Active Substance: METFORMIN HYDROCHLORIDE
  2. OMEPRAZOLE. [Concomitant]
     Active Substance: OMEPRAZOLE
  3. CALCIUM [Concomitant]
     Active Substance: CALCIUM
  4. VITAMIN D [Concomitant]
     Active Substance: VITAMIN D NOS
  5. PREDNISOLONE. [Concomitant]
     Active Substance: PREDNISOLONE
  6. LEFLUNOMIDE. [Suspect]
     Active Substance: LEFLUNOMIDE
     Indication: POLYMYALGIA RHEUMATICA
     Dosage: 20 MILLIGRAM, 1 DOSE PER 1 D
     Route: 048
     Dates: start: 20200116, end: 20210214
  7. ALENDRONIC ACID [Concomitant]
     Active Substance: ALENDRONIC ACID

REACTIONS (3)
  - Musculoskeletal stiffness [Recovering/Resolving]
  - Back pain [Recovering/Resolving]
  - Hypoaesthesia [Recovering/Resolving]

NARRATIVE: CASE EVENT DATE: 20200720
